FAERS Safety Report 9159745 (Version 2)
Quarter: 2013Q1

REPORT INFORMATION
  Report Type: Spontaneous
  Country: US (occurrence: None)
  Receive Date: 20130220
  Receipt Date: 20130220
  Transmission Date: 20140127
  Serious: Yes (Other)
  Sender: FDA-Public Use
  Company Number: MC201300085

PATIENT
  Age: 81 Year
  Sex: Male

DRUGS (1)
  1. CLEVIPREX [Suspect]
     Indication: PROCEDURAL HYPERTENSION
     Route: 042
     Dates: start: 20130207

REACTIONS (3)
  - Atrial fibrillation [None]
  - Supraventricular tachycardia [None]
  - Dehydration [None]
